FAERS Safety Report 8870517 (Version 1)
Quarter: 2012Q4

REPORT INFORMATION
  Report Type: 
  Country: US (occurrence: US)
  Receive Date: 20121023
  Receipt Date: 20121023
  Transmission Date: 20130627
  Serious: No
  Sender: FDA-Public Use
  Company Number: US-AMGEN-USASP2011064525

PATIENT
  Age: 64 Year

DRUGS (11)
  1. ENBREL [Suspect]
     Indication: PRODUCT USED FOR UNKNOWN INDICATION
     Dosage: 50 mg, qwk
  2. METHOTREXATE [Concomitant]
     Dosage: 2.5 mg, UNK
  3. ISOSORB [Concomitant]
     Dosage: 20 mg, UNK
  4. ATENOLOL [Concomitant]
     Dosage: 25 mg, UNK
  5. PREDNISONE [Concomitant]
     Dosage: 1 mg, UNK
  6. FOLIC ACID [Concomitant]
     Dosage: 1 mg, UNK
  7. NAPROSYN [Concomitant]
     Dosage: 250 mg, UNK
  8. OMEPRAZOLE [Concomitant]
     Dosage: 10 mg, UNK
  9. FISH OIL [Concomitant]
  10. CALCIUM [Concomitant]
     Dosage: 500 mg, UNK
  11. MULTIVITAMIN [Concomitant]

REACTIONS (1)
  - Surgery [Unknown]
